FAERS Safety Report 13748070 (Version 1)
Quarter: 2017Q3

REPORT INFORMATION
  Report Type: Spontaneous
  Country: US (occurrence: US)
  Receive Date: 20170713
  Receipt Date: 20170713
  Transmission Date: 20171127
  Serious: Yes (Hospitalization, Other)
  Sender: FDA-Public Use
  Company Number: US-ROCHE-1962242

PATIENT
  Age: 62 Year
  Sex: Male

DRUGS (5)
  1. RITUXAN [Suspect]
     Active Substance: RITUXIMAB
     Indication: B-CELL LYMPHOMA RECURRENT
     Dosage: NO
     Route: 042
     Dates: start: 201410, end: 201503
  2. BENADRYL [Concomitant]
     Active Substance: DIPHENHYDRAMINE HYDROCHLORIDE
     Indication: PREMEDICATION
     Dosage: ONE TIME DOSE ;ONGOING: NO
     Route: 065
     Dates: start: 20170623, end: 20170623
  3. RITUXAN [Suspect]
     Active Substance: RITUXIMAB
     Dosage: NO
     Route: 042
     Dates: start: 20170623, end: 2017
  4. TYLENOL [Concomitant]
     Active Substance: ACETAMINOPHEN
     Indication: PREMEDICATION
     Dosage: ONE TIME DOSE ;ONGOING: NO
     Route: 065
     Dates: start: 20170623, end: 20170623
  5. ATIVAN [Concomitant]
     Active Substance: LORAZEPAM
     Indication: PREMEDICATION
     Dosage: ONE TIME DOSE ;ONGOING: NO
     Route: 065
     Dates: start: 20170623, end: 20170623

REACTIONS (6)
  - Pain in extremity [Recovered/Resolved]
  - Ileus [Recovered/Resolved]
  - Bacterial infection [Recovered/Resolved]
  - Diarrhoea [Recovered/Resolved]
  - Chills [Recovered/Resolved]
  - Feeling cold [Recovered/Resolved]

NARRATIVE: CASE EVENT DATE: 20170623
